FAERS Safety Report 6762597-6 (Version None)
Quarter: 2010Q2

REPORT INFORMATION
  Report Type: 
  Country: None (occurrence: None)
  Receive Date: 20100609
  Receipt Date: 20100528
  Transmission Date: 20101027
  Serious: Yes (Hospitalization)
  Sender: FDA-Public Use
  Company Number: NL-TEVA-235667ISR

PATIENT
  Age: 33 Year
  Sex: Female

DRUGS (3)
  1. TRAMADOL HCL [Suspect]
     Indication: PAIN
     Route: 048
     Dates: start: 20100521, end: 20100523
  2. NORFLOXACIN [Concomitant]
     Indication: CYSTITIS
     Route: 048
     Dates: start: 20100518, end: 20100523
  3. INSULIN GLARGINE [Concomitant]
     Indication: DIABETES MELLITUS
     Dosage: 18-20 UNITS

REACTIONS (3)
  - DRUG INEFFECTIVE [None]
  - PAIN [None]
  - PYELONEPHRITIS [None]
